FAERS Safety Report 21528289 (Version 1)
Quarter: 2022Q4

REPORT INFORMATION
  Report Type: Spontaneous
  Country: US (occurrence: US)
  Receive Date: 20221031
  Receipt Date: 20221031
  Transmission Date: 20230113
  Serious: No
  Sender: FDA-Public Use
  Company Number: US-PFIZER INC-202201253285

PATIENT
  Age: 78 Year
  Sex: Female
  Weight: 49.9 kg

DRUGS (8)
  1. PAXLOVID [Suspect]
     Active Substance: NIRMATRELVIR\RITONAVIR
     Indication: COVID-19 treatment
     Dosage: 3 DF, [TAKES ALL 3 AT ONE TIME]
     Dates: start: 20221023
  2. ROSUVASTATIN [Concomitant]
     Active Substance: ROSUVASTATIN
     Indication: Blood cholesterol abnormal
     Dosage: 5 MG, 1X/DAY
     Dates: start: 202208, end: 20221022
  3. BREO ELLIPTA [Concomitant]
     Active Substance: FLUTICASONE FUROATE\VILANTEROL TRIFENATATE
     Indication: Lung disorder
     Dosage: UNK, 1X/DAY, [100-25MCG; TAKES 1 PUFF A DAY]
  4. BREO ELLIPTA [Concomitant]
     Active Substance: FLUTICASONE FUROATE\VILANTEROL TRIFENATATE
     Indication: Chronic obstructive pulmonary disease
  5. ASPIRIN [Concomitant]
     Active Substance: ASPIRIN
     Dosage: 81 MG, 1X/DAY, [81MG ONCE IN THE EVENING]
  6. MELATONIN [Concomitant]
     Active Substance: MELATONIN
     Dosage: 3 MG, 1X/DAY, [3MG EVERY NIGHT]
  7. ZYRTEC [Concomitant]
     Active Substance: CETIRIZINE HYDROCHLORIDE
     Dosage: 5 MG, 1X/DAY, [5MG AT BEDTIME]
  8. CLARITHROMYCIN [Concomitant]
     Active Substance: CLARITHROMYCIN
     Dosage: UNK

REACTIONS (6)
  - Nausea [Not Recovered/Not Resolved]
  - Malaise [Unknown]
  - Palpitations [Recovered/Resolved]
  - Headache [Recovered/Resolved]
  - Pain [Unknown]
  - Insomnia [Unknown]
